FAERS Safety Report 21561336 (Version 1)
Quarter: 2022Q4

REPORT INFORMATION
  Report Type: Spontaneous
  Country: DE (occurrence: DE)
  Receive Date: 20221107
  Receipt Date: 20221107
  Transmission Date: 20230113
  Serious: Yes (Hospitalization)
  Sender: FDA-Public Use
  Company Number: DE-ADRED-04860-02

PATIENT
  Age: 87 Year
  Sex: Female

DRUGS (11)
  1. ESCITALOPRAM [Suspect]
     Active Substance: ESCITALOPRAM OXALATE
     Indication: Product used for unknown indication
     Dosage: 10 MILLIGRAM,10 MG, 1-0-0-0
     Route: 048
  2. COMIRNATY [Suspect]
     Active Substance: TOZINAMERAN
     Indication: Product used for unknown indication
     Dosage: 0.3 MILLILITER
     Route: 030
  3. HYGROTON [Suspect]
     Active Substance: CHLORTHALIDONE
     Indication: Product used for unknown indication
     Dosage: 25 MILLIGRAM, 0.5-0-0-0
     Route: 048
  4. SOLIFENACIN [Concomitant]
     Active Substance: SOLIFENACIN
     Dosage: 5 MILLIGRAM, 5 MG, 1-0-0-0
     Route: 048
  5. GINKGO [Concomitant]
     Active Substance: GINKGO
     Dosage: 1-0-0-0
     Route: 048
  6. ALFACALCIDOL [Concomitant]
     Active Substance: ALFACALCIDOL
     Dosage: 0.25 MICROGRAM,0.25 ?G, MONDAY WEDNESDAY FRIDAY MORNING ONE
     Route: 048
  7. PANTOPRAZOLE SODIUM [Concomitant]
     Active Substance: PANTOPRAZOLE SODIUM
     Dosage: 20 MILLIGRAM,20 MG, 1-0-0-0
     Route: 048
  8. Vigantol [Concomitant]
     Dosage: 20000 IE/ML FOUR DROPS IN THE MORNING
     Route: 048
  9. LEVOTHYROXINE SODIUM [Concomitant]
     Active Substance: LEVOTHYROXINE SODIUM
     Dosage: 50 MICROGRAM,50 ?G, 1-0-0-0
     Route: 048
  10. ASPIRIN [Concomitant]
     Active Substance: ASPIRIN
     Dosage: 100 MILLIGRAM, 100 MG, 1-0-0-0
     Route: 048
  11. CANDESARTAN [Concomitant]
     Active Substance: CANDESARTAN
     Dosage: 16 MILLIGRAM,16 MG, 1-0-1-0
     Route: 048

REACTIONS (7)
  - Erythema [Unknown]
  - General physical health deterioration [Unknown]
  - Joint abscess [Unknown]
  - Cognitive disorder [Unknown]
  - Asthenia [Unknown]
  - Pyrexia [Unknown]
  - Hyponatraemia [Unknown]
